FAERS Safety Report 16388783 (Version 1)
Quarter: 2019Q2

REPORT INFORMATION
  Report Type: Spontaneous
  Country: JP (occurrence: JP)
  Receive Date: 20190604
  Receipt Date: 20190604
  Transmission Date: 20190711
  Serious: Yes (Other)
  Sender: FDA-Public Use
  Company Number: JP-BAUSCH-BL-2019-015924

PATIENT
  Age: 77 Year
  Sex: Male

DRUGS (4)
  1. PREDNISOLONE. [Suspect]
     Active Substance: PREDNISOLONE
     Route: 048
  2. ETOPOSIDE. [Suspect]
     Active Substance: ETOPOSIDE
     Indication: ADULT T-CELL LYMPHOMA/LEUKAEMIA
     Dosage: LOW-DOSE
     Route: 065
  3. ETRETINATE [Concomitant]
     Active Substance: ETRETINATE
     Indication: ADULT T-CELL LYMPHOMA/LEUKAEMIA
     Route: 048
  4. PREDNISOLONE. [Suspect]
     Active Substance: PREDNISOLONE
     Indication: ADULT T-CELL LYMPHOMA/LEUKAEMIA
     Route: 048

REACTIONS (1)
  - Stomatitis [Unknown]
